FAERS Safety Report 6735111-9 (Version None)
Quarter: 2010Q2

REPORT INFORMATION
  Report Type: 
  Country: None (occurrence: None)
  Receive Date: 20100521
  Receipt Date: 20100512
  Transmission Date: 20101027
  Serious: Yes (Life-Threatening, Hospitalization, Other)
  Sender: FDA-Public Use
  Company Number: JP-PFIZER INC-2009288740

PATIENT
  Age: 49 Year
  Sex: Female
  Weight: 62 kg

DRUGS (7)
  1. SUNITINIB MALATE [Suspect]
     Indication: RENAL CELL CARCINOMA
     Dosage: 50 MG, 1X/DAY
     Route: 048
     Dates: start: 20090831, end: 20090922
  2. ACECOL [Concomitant]
     Dosage: UNK
     Route: 048
  3. OMEPRAL [Concomitant]
     Dosage: UNK
     Route: 048
  4. LASIX [Concomitant]
     Dosage: 20 MG, 1X/DAY
     Route: 048
  5. RINDERON [Concomitant]
     Dosage: 2.5 MG, 2X/DAY
     Route: 048
  6. AMLODIN [Concomitant]
     Route: 048
  7. PASTARON [Concomitant]
     Dosage: UNK
     Route: 062

REACTIONS (10)
  - C-REACTIVE PROTEIN INCREASED [None]
  - HYPOTHYROIDISM [None]
  - PAIN [None]
  - PALMAR-PLANTAR ERYTHRODYSAESTHESIA SYNDROME [None]
  - PLATELET COUNT DECREASED [None]
  - PURPURA [None]
  - PYREXIA [None]
  - STOMATITIS [None]
  - STREPTOCOCCAL INFECTION [None]
  - WHITE BLOOD CELL COUNT DECREASED [None]
